FAERS Safety Report 7201766-8 (Version None)
Quarter: 2010Q4

REPORT INFORMATION
  Report Type: 
  Country: None (occurrence: None)
  Receive Date: 20101229
  Receipt Date: 20101214
  Transmission Date: 20110411
  Serious: Yes (Other)
  Sender: FDA-Public Use
  Company Number: GR-ROCHE-750442

PATIENT
  Age: 47 Year
  Sex: Male

DRUGS (3)
  1. BEVACIZUMAB [Suspect]
     Indication: METASTATIC RENAL CELL CARCINOMA
     Dosage: INTERUPTED
     Route: 065
     Dates: start: 20090801, end: 20100501
  2. INTERFERON ALFA [Suspect]
     Indication: METASTATIC RENAL CELL CARCINOMA
     Route: 065
  3. INTERFERON ALFA [Suspect]
     Route: 065
     Dates: start: 20090801

REACTIONS (3)
  - DISEASE PROGRESSION [None]
  - FATIGUE [None]
  - INFLUENZA LIKE ILLNESS [None]
